FAERS Safety Report 16747965 (Version 2)
Quarter: 2020Q3

REPORT INFORMATION
  Report Type: Spontaneous
  Country: JP (occurrence: JP)
  Receive Date: 20190827
  Receipt Date: 20200928
  Transmission Date: 20201102
  Serious: No
  Sender: FDA-Public Use
  Company Number: JP-BEH-2019105869

PATIENT
  Age: 20 Year
  Sex: Male
  Weight: 57.1 kg

DRUGS (8)
  1. HIZENTRA [Suspect]
     Active Substance: HUMAN IMMUNOGLOBULIN G
     Dosage: 8 GRAM (20 ML), ONCE OR TWICE A WEEK
     Route: 058
  2. HIZENTRA [Suspect]
     Active Substance: HUMAN IMMUNOGLOBULIN G
     Dosage: 80 MILLILITER, SINGLE (ONE DAY)
     Route: 058
     Dates: start: 20190821, end: 20190821
  3. HIZENTRA [Suspect]
     Active Substance: HUMAN IMMUNOGLOBULIN G
     Dosage: 80 MILLILITER, QOW
     Route: 058
     Dates: start: 20190918, end: 20191002
  4. HIZENTRA [Suspect]
     Active Substance: HUMAN IMMUNOGLOBULIN G
     Dosage: 80 MILLILITER, SINGLE (ONE DAY)
     Route: 058
     Dates: start: 20190828, end: 20190828
  5. HIZENTRA [Suspect]
     Active Substance: HUMAN IMMUNOGLOBULIN G
     Dosage: 80 MILLILITER, QOW
     Route: 058
     Dates: start: 20190911, end: 20191009
  6. HIZENTRA [Suspect]
     Active Substance: HUMAN IMMUNOGLOBULIN G
     Dosage: 80 MILLILITER, SINGLE (ONE DAY)
     Route: 058
     Dates: start: 20190815, end: 20190815
  7. HIZENTRA [Suspect]
     Active Substance: HUMAN IMMUNOGLOBULIN G
     Indication: CHRONIC INFLAMMATORY DEMYELINATING POLYRADICULONEUROPATHY
     Dosage: 8 GRAM (40 ML), TOT
     Route: 058
     Dates: start: 20190808, end: 20190808
  8. HIZENTRA [Suspect]
     Active Substance: HUMAN IMMUNOGLOBULIN G
     Dosage: 8 GRAM (40 ML), TOT
     Route: 058
     Dates: start: 20190809, end: 20190809

REACTIONS (8)
  - Pallor [Recovered/Resolved]
  - Nausea [Recovered/Resolved]
  - Injection site erythema [Recovering/Resolving]
  - Injection site pain [Recovering/Resolving]
  - Product dose omission issue [Unknown]
  - Hypotension [Recovered/Resolved]
  - Injection site swelling [Recovering/Resolving]
  - No adverse event [Unknown]

NARRATIVE: CASE EVENT DATE: 20190809
